FAERS Safety Report 18604256 (Version 17)
Quarter: 2023Q2

REPORT INFORMATION
  Report Type: Spontaneous
  Country: US (occurrence: US)
  Receive Date: 20201211
  Receipt Date: 20230621
  Transmission Date: 20230721
  Serious: Yes (Hospitalization, Other)
  Sender: FDA-Public Use
  Company Number: US-GLAXOSMITHKLINE-US2020AMR240724

PATIENT

DRUGS (14)
  1. ZEJULA [Suspect]
     Active Substance: NIRAPARIB
     Indication: Ovarian cancer
     Dosage: 200 MG, QD
     Route: 048
     Dates: start: 20201027
  2. ZEJULA [Suspect]
     Active Substance: NIRAPARIB
     Dosage: 200 MG, QD
  3. ZEJULA [Suspect]
     Active Substance: NIRAPARIB
     Dosage: 200 MG, QD
  4. ZEJULA [Suspect]
     Active Substance: NIRAPARIB
     Dosage: 200 MG, QD
  5. ZEJULA [Suspect]
     Active Substance: NIRAPARIB
     Dosage: 200 MG, QD
  6. ZEJULA [Suspect]
     Active Substance: NIRAPARIB
     Dosage: 200 MG, QD
  7. ZEJULA [Suspect]
     Active Substance: NIRAPARIB
     Dosage: 200 MG, QD
     Route: 048
  8. ZEJULA [Suspect]
     Active Substance: NIRAPARIB
     Dosage: 200 MG, QD
  9. ZEJULA [Suspect]
     Active Substance: NIRAPARIB
     Dosage: 200 MG, QD
     Route: 048
  10. ZEJULA [Suspect]
     Active Substance: NIRAPARIB
     Dosage: 200 MG, QD
     Route: 048
  11. ZEJULA [Suspect]
     Active Substance: NIRAPARIB
     Dosage: 200 MG, QD
  12. ZEJULA [Suspect]
     Active Substance: NIRAPARIB
     Dosage: 200 MG, QD
     Route: 048
  13. ZEJULA [Suspect]
     Active Substance: NIRAPARIB
     Dosage: 200 MG, QD
  14. ZEJULA [Suspect]
     Active Substance: NIRAPARIB
     Dosage: 200 MG, QD
     Route: 048

REACTIONS (25)
  - Large intestine perforation [Unknown]
  - Squamous cell carcinoma [Recovering/Resolving]
  - Recurrent cancer [Recovering/Resolving]
  - Discomfort [Unknown]
  - Constipation [Unknown]
  - Dry skin [Unknown]
  - Pruritus [Unknown]
  - Platelet count decreased [Not Recovered/Not Resolved]
  - Photosensitivity reaction [Unknown]
  - Erythema [Unknown]
  - Peripheral swelling [Unknown]
  - Ear disorder [Unknown]
  - Stress [Not Recovered/Not Resolved]
  - Temporomandibular joint syndrome [Unknown]
  - Pain [Unknown]
  - Pain in jaw [Recovered/Resolved]
  - COVID-19 [Unknown]
  - Cough [Unknown]
  - Oropharyngeal pain [Unknown]
  - Anaemia [Not Recovered/Not Resolved]
  - Biopsy [Unknown]
  - Cataract operation [Unknown]
  - White blood cell count abnormal [Unknown]
  - Product dose omission issue [Unknown]
  - Drug monitoring procedure not performed [Unknown]

NARRATIVE: CASE EVENT DATE: 20210301
